FAERS Safety Report 15862083 (Version 1)
Quarter: 2018Q4

REPORT INFORMATION
  Report Type: Spontaneous
  Country: US (occurrence: US)
  Receive Date: 20181231
  Receipt Date: 20181231
  Transmission Date: 20190205
  Serious: Yes (Death)
  Sender: FDA-Public Use
  Company Number: None

PATIENT
  Age: 62 Year
  Sex: Female

DRUGS (17)
  1. POTASSIUM CHLORIDE. [Concomitant]
     Active Substance: POTASSIUM CHLORIDE
  2. FERROUS SULFATE. [Concomitant]
     Active Substance: FERROUS SULFATE
  3. MAGNESIUM OXIDE. [Concomitant]
     Active Substance: MAGNESIUM OXIDE
  4. VENTAVIS [Concomitant]
     Active Substance: ILOPROST
  5. BUMEX [Concomitant]
     Active Substance: BUMETANIDE
  6. METOLAZONE. [Concomitant]
     Active Substance: METOLAZONE
  7. OMEPRAZOLE. [Concomitant]
     Active Substance: OMEPRAZOLE
  8. RESTASIS [Concomitant]
     Active Substance: CYCLOSPORINE
  9. DIGOXIN. [Concomitant]
     Active Substance: DIGOXIN
  10. OXAZEPAM. [Concomitant]
     Active Substance: OXAZEPAM
  11. OS-CAL 500+D3 [Concomitant]
  12. MVI [Concomitant]
     Active Substance: VITAMINS
  13. TADALAFIL. [Concomitant]
     Active Substance: TADALAFIL
  14. FLONASE [Concomitant]
     Active Substance: FLUTICASONE PROPIONATE
  15. TRACLEER [Suspect]
     Active Substance: BOSENTAN
     Route: 048
     Dates: start: 201412, end: 201812
  16. ASXORBIC ACID [Concomitant]
  17. SPIRONOLACTONE. [Concomitant]
     Active Substance: SPIRONOLACTONE

REACTIONS (8)
  - Unresponsive to stimuli [None]
  - Renal failure [None]
  - Abdominal pain [None]
  - Pulse absent [None]
  - Cough [None]
  - Acute respiratory failure [None]
  - Bradycardia [None]
  - Dyspnoea [None]

NARRATIVE: CASE EVENT DATE: 20181111
